FAERS Safety Report 8894981 (Version 1)
Quarter: 2012Q4

REPORT INFORMATION
  Report Type: 
  Country: US (occurrence: US)
  Receive Date: 20121107
  Receipt Date: 20121107
  Transmission Date: 20130627
  Serious: No
  Sender: FDA-Public Use
  Company Number: US-AMGEN-USASP2011059275

PATIENT
  Age: 11 Year
  Sex: Female
  Weight: 42.3 kg

DRUGS (3)
  1. ENBREL [Suspect]
     Indication: JUVENILE ARTHRITIS
     Dosage: 25 mg, qwk
     Dates: start: 20110811
  2. ENBREL [Suspect]
     Dosage: 25 mg, qwk
     Route: 058
     Dates: start: 20010707
  3. MOBIC [Concomitant]
     Indication: JUVENILE ARTHRITIS
     Dosage: 7.5 g, UNK
     Route: 048

REACTIONS (5)
  - Injection site haemorrhage [Recovered/Resolved]
  - Injection site reaction [Unknown]
  - Injection site pruritus [Unknown]
  - Injection site warmth [Unknown]
  - Injection site erythema [Unknown]
